FAERS Safety Report 6062973-3 (Version None)
Quarter: 2009Q1

REPORT INFORMATION
  Report Type: 
  Country: None (occurrence: None)
  Receive Date: 20090203
  Receipt Date: 20090130
  Transmission Date: 20090719
  Serious: Yes (Hospitalization, Disabling)
  Sender: FDA-Public Use
  Company Number: B0537603A

PATIENT
  Age: 76 Year
  Sex: Male

DRUGS (6)
  1. VALTREX [Suspect]
     Indication: HERPES ZOSTER
     Dosage: 1000MG THREE TIMES PER DAY
     Route: 048
     Dates: start: 20080908, end: 20080912
  2. CYANOCOBALAMIN [Concomitant]
     Route: 065
     Dates: start: 20080908
  3. JUVELA [Concomitant]
     Route: 065
     Dates: start: 20080908
  4. NAIXAN [Concomitant]
     Route: 048
     Dates: start: 20080908, end: 20080912
  5. BIODIASTASE [Concomitant]
     Route: 048
     Dates: start: 20080908
  6. LOXONIN [Concomitant]
     Route: 065
     Dates: start: 20080913

REACTIONS (5)
  - ADVERSE REACTION [None]
  - ALTERED STATE OF CONSCIOUSNESS [None]
  - ANEURYSM [None]
  - CONVULSION [None]
  - ENCEPHALOPATHY [None]
